FAERS Safety Report 8262286-5 (Version None)
Quarter: 2012Q2

REPORT INFORMATION
  Report Type: 
  Country: None (occurrence: None)
  Receive Date: 20120405
  Receipt Date: 20120326
  Transmission Date: 20120825
  Serious: Yes (Hospitalization)
  Sender: FDA-Public Use
  Company Number: US-ELI_LILLY_AND_COMPANY-US201203008353

PATIENT
  Sex: Male

DRUGS (3)
  1. EFFIENT [Suspect]
     Indication: STENT PLACEMENT
     Dosage: 60 MG, LOADING DOSE
     Dates: start: 20111101
  2. EFFIENT [Suspect]
     Dosage: 10 MG, QD
  3. ASPIRIN [Concomitant]
     Dosage: 325 MG, UNKNOWN

REACTIONS (2)
  - FALL [None]
  - HAEMORRHAGE [None]
